FAERS Safety Report 11379053 (Version 1)
Quarter: 2015Q3

REPORT INFORMATION
  Report Type: Spontaneous
  Country: IT (occurrence: None)
  Receive Date: 20150812
  Receipt Date: 20150812
  Transmission Date: 20151125
  Serious: Yes (Other)
  Sender: FDA-Public Use
  Company Number: 2015RR-98584

PATIENT
  Age: 71 Year
  Sex: Male

DRUGS (1)
  1. LORAZEPAM (LORAZEPAM) TABLET [Suspect]
     Active Substance: LORAZEPAM
     Indication: DRUG ABUSE
     Route: 048
     Dates: start: 20150515, end: 20150515

REACTIONS (3)
  - Sopor [None]
  - Drug abuse [None]
  - Intentional self-injury [None]

NARRATIVE: CASE EVENT DATE: 20150515
